FAERS Safety Report 18807664 (Version 1)
Quarter: 2021Q1

REPORT INFORMATION
  Report Type: Spontaneous
  Country: US (occurrence: US)
  Receive Date: 20210128
  Receipt Date: 20210128
  Transmission Date: 20210419
  Serious: Yes (Death)
  Sender: FDA-Public Use
  Company Number: None

PATIENT
  Age: 55 Year
  Sex: Female

DRUGS (1)
  1. REVLIMID [Suspect]
     Active Substance: LENALIDOMIDE
     Indication: PLASMA CELL MYELOMA
     Route: 048
     Dates: start: 20141113, end: 20210107

REACTIONS (4)
  - Brain oedema [None]
  - Spinal fracture [None]
  - Brain injury [None]
  - Fall [None]

NARRATIVE: CASE EVENT DATE: 20210107
